FAERS Safety Report 16330564 (Version 2)
Quarter: 2019Q2

REPORT INFORMATION
  Report Type: Spontaneous
  Country: US (occurrence: US)
  Receive Date: 20190520
  Receipt Date: 20190523
  Transmission Date: 20190711
  Serious: Yes (Hospitalization, Other)
  Sender: FDA-Public Use
  Company Number: US-SA-2019SA136653

PATIENT
  Age: 70 Year
  Sex: Male

DRUGS (2)
  1. DUPIXENT [Suspect]
     Active Substance: DUPILUMAB
     Indication: ECZEMA
     Dosage: 300 MG, QOW
     Route: 058
     Dates: start: 20181028, end: 20190429
  2. DUPIXENT [Suspect]
     Active Substance: DUPILUMAB
     Indication: DERMATITIS
     Dosage: 200 MG, QD
     Route: 058
     Dates: start: 201811

REACTIONS (8)
  - Eosinophilia [Unknown]
  - Cardiac failure [Unknown]
  - Pneumonitis [Unknown]
  - Dyspnoea [Unknown]
  - Pulmonary oedema [Unknown]
  - Pleural effusion [Unknown]
  - Malaise [Unknown]
  - Product use issue [Unknown]

NARRATIVE: CASE EVENT DATE: 201902
